FAERS Safety Report 13786025 (Version 1)
Quarter: 2017Q3

REPORT INFORMATION
  Report Type: Spontaneous
  Country: US (occurrence: US)
  Receive Date: 20170725
  Receipt Date: 20170725
  Transmission Date: 20171127
  Serious: No
  Sender: FDA-Public Use
  Company Number: US-UNITED THERAPEUTICS-UNT-2017-007392

PATIENT
  Sex: Female
  Weight: 140.59 kg

DRUGS (1)
  1. TYVASO [Suspect]
     Active Substance: TREPROSTINIL
     Indication: PULMONARY ARTERIAL HYPERTENSION
     Dosage: 72 ?G, QID
     Dates: start: 20140113

REACTIONS (15)
  - Rales [Unknown]
  - Headache [Unknown]
  - Eye discharge [Unknown]
  - Sinusitis [Unknown]
  - Upper respiratory tract infection [Unknown]
  - Oropharyngeal pain [Unknown]
  - Skin disorder [Unknown]
  - Off label use [Unknown]
  - Contusion [Unknown]
  - Nasal congestion [Unknown]
  - Eye swelling [Unknown]
  - Pyrexia [Unknown]
  - Viral infection [Unknown]
  - Back pain [Unknown]
  - Fluid retention [Unknown]

NARRATIVE: CASE EVENT DATE: 201705
